FAERS Safety Report 24976710 (Version 12)
Quarter: 2025Q4

REPORT INFORMATION
  Report Type: Report from Study
  Country: US (occurrence: US)
  Receive Date: 20250217
  Receipt Date: 20251211
  Transmission Date: 20260117
  Serious: Yes (Hospitalization, Other)
  Sender: TRAVERE THERAPEUTICS
  Company Number: US-TRAVERE-2025TVT00181

PATIENT
  Age: 23 Year
  Sex: Male
  Weight: 82 kg

DRUGS (12)
  1. FILSPARI [Suspect]
     Active Substance: SPARSENTAN
     Indication: IgA nephropathy
     Dosage: LOT NUMBER: 1976071, EXPIRY DATE: 30-MAY-2026
     Route: 048
     Dates: start: 20241112, end: 20241125
  2. FILSPARI [Suspect]
     Active Substance: SPARSENTAN
     Indication: Chronic kidney disease
     Dosage: LOT NUMBER: 1976071, EXPIRY DATE: 30-MAY-2026
     Route: 048
     Dates: start: 20241125, end: 202504
  3. FILSPARI [Suspect]
     Active Substance: SPARSENTAN
     Dosage: LOT NUMBER: 1976071, EXPIRY DATE: 30-MAY-2026
     Route: 048
     Dates: start: 202510
  4. MYCOPHENOLIC ACID [Concomitant]
     Active Substance: MYCOPHENOLIC ACID
  5. JARDIANCE [Concomitant]
     Active Substance: EMPAGLIFLOZIN
  6. AMLODIPINE [Concomitant]
     Active Substance: AMLODIPINE BESYLATE
  7. ZOLOFT [Concomitant]
     Active Substance: SERTRALINE HYDROCHLORIDE
  8. BUSPIRONE [Concomitant]
     Active Substance: BUSPIRONE HYDROCHLORIDE
  9. PREDNISONE [Concomitant]
     Active Substance: PREDNISONE
  10. XARELTO [Concomitant]
     Active Substance: RIVAROXABAN
  11. NALOXONE [Concomitant]
     Active Substance: NALOXONE
  12. ACETAMINOPHEN\HYDROCODONE [Concomitant]
     Active Substance: ACETAMINOPHEN\HYDROCODONE

REACTIONS (16)
  - Conversion disorder [Recovering/Resolving]
  - Loss of consciousness [None]
  - Haematochezia [None]
  - Seizure [None]
  - Dizziness [Unknown]
  - Tremor [None]
  - Nausea [None]
  - Hypoacusis [Unknown]
  - Vision blurred [Recovering/Resolving]
  - Eyelid discolouration [Unknown]
  - Lip discolouration [Unknown]
  - Paraesthesia [Unknown]
  - Hypoaesthesia [Unknown]
  - Abdominal pain upper [Unknown]
  - Vomiting [None]
  - Off label use [Unknown]

NARRATIVE: CASE EVENT DATE: 20250422
